FAERS Safety Report 24605771 (Version 2)
Quarter: 2024Q4

REPORT INFORMATION
  Report Type: Report from Study
  Country: US (occurrence: US)
  Receive Date: 20241111
  Receipt Date: 20241130
  Transmission Date: 20250115
  Serious: Yes (Other)
  Sender: ABBVIE
  Company Number: US-ABBVIE-5993175

PATIENT
  Age: 66 Year
  Sex: Female

DRUGS (2)
  1. RINVOQ [Suspect]
     Active Substance: UPADACITINIB
     Indication: Colitis ulcerative
     Dosage: LAST ADMIN DATE: 2024, 45 MG
     Route: 048
     Dates: start: 20240701
  2. RINVOQ [Suspect]
     Active Substance: UPADACITINIB
     Indication: Colitis ulcerative
     Dosage: 15 MG, DOSE DECREASED
     Route: 048
     Dates: start: 2024

REACTIONS (11)
  - Pharyngeal operation [Unknown]
  - Lymphadenopathy [Unknown]
  - Malaise [Unknown]
  - Diverticulitis [Unknown]
  - Drug ineffective [Unknown]
  - Inflammation [Recovering/Resolving]
  - Colitis ulcerative [Unknown]
  - Crohn^s disease [Unknown]
  - Skin mass [Unknown]
  - Rash papular [Unknown]
  - Peripheral swelling [Unknown]

NARRATIVE: CASE EVENT DATE: 20240101
